FAERS Safety Report 6732482-4 (Version None)
Quarter: 2010Q2

REPORT INFORMATION
  Report Type: 
  Country: None (occurrence: None)
  Receive Date: 20100519
  Receipt Date: 20100513
  Transmission Date: 20101027
  Serious: Yes (Hospitalization)
  Sender: FDA-Public Use
  Company Number: JP-BAYER-201011983BYL

PATIENT
  Age: 60 Year
  Sex: Male
  Weight: 52 kg

DRUGS (9)
  1. CIPROFLOXACIN HCL [Suspect]
     Indication: CHOLECYSTITIS
     Dosage: TOTAL DAILY DOSE: 100 MG  UNIT DOSE: 100 MG
     Route: 048
     Dates: start: 20100401, end: 20100421
  2. OMEPRAL [Concomitant]
     Indication: GASTRIC ULCER
     Dosage: UNIT DOSE: 20 MG
     Route: 048
  3. ALLOID G [Concomitant]
     Indication: GASTRIC ULCER
     Dosage: UNIT DOSE: 240 ML
     Route: 048
  4. GASTROM [Concomitant]
     Indication: GASTRIC ULCER
     Dosage: UNIT DOSE: 2 G
     Route: 048
  5. PROMAC [Concomitant]
     Indication: GASTRIC ULCER
     Dosage: UNIT DOSE: 75 MG
     Route: 048
  6. AMINOLEBAN EN [Concomitant]
     Indication: HEPATIC FAILURE
     Dosage: UNIT DOSE: 1 DF
     Route: 048
  7. FUROSEMIDE [Concomitant]
     Indication: POLYURIA
     Dosage: UNIT DOSE: 40 MG
     Route: 048
  8. ALDACTONE [Concomitant]
     Indication: POLYURIA
     Dosage: UNIT DOSE: 25 MG
     Route: 048
  9. D ALFA [Concomitant]
     Indication: RENAL FAILURE
     Dosage: UNIT DOSE: 0.25 ?G
     Route: 048

REACTIONS (1)
  - HYPERAMMONAEMIA [None]
